FAERS Safety Report 4837407-4 (Version None)
Quarter: 2005Q4

REPORT INFORMATION
  Report Type: 
  Country: None (occurrence: None)
  Receive Date: 20051123
  Receipt Date: 20051123
  Transmission Date: 20060501
  Serious: No
  Sender: FDA-Public Use
  Company Number: None

PATIENT
  Age: 65 Year
  Sex: Male
  Weight: 80 kg

DRUGS (2)
  1. AZTREONAM [Suspect]
     Indication: INFECTION
     Dosage: 2 GM IV Q 8 HRS
     Route: 042
  2. TOBRAMYCIN [Concomitant]

REACTIONS (6)
  - DYSPNOEA [None]
  - PHARYNGEAL OEDEMA [None]
  - PRURITUS [None]
  - RASH [None]
  - REFUSAL OF TREATMENT BY PATIENT [None]
  - SWOLLEN TONGUE [None]
